FAERS Safety Report 7713564-7 (Version None)
Quarter: 2011Q3

REPORT INFORMATION
  Report Type: 
  Country: None (occurrence: None)
  Receive Date: 20110823
  Receipt Date: 20110811
  Transmission Date: 20111222
  Serious: Yes (Other)
  Sender: FDA-Public Use
  Company Number: LEO-2011-00669

PATIENT
  Age: 25 Year
  Sex: Male

DRUGS (5)
  1. DOVONEX [Suspect]
     Indication: PSORIASIS
     Dosage: (TOP), TOPICAL
     Route: 061
  2. CLOBEX [Suspect]
  3. SALEX SHAMPOO (SALICYLIC ACID) [Concomitant]
  4. CORTICOID (CORTICOSTEROID NOS) [Concomitant]
     Indication: PSORIASIS
     Dosage: TOPICAL
     Route: 061
  5. ELIDEL [Suspect]

REACTIONS (3)
  - CHORIORETINOPATHY [None]
  - RETINAL OEDEMA [None]
  - MACULAR OEDEMA [None]
